FAERS Safety Report 25301308 (Version 1)
Quarter: 2025Q2

REPORT INFORMATION
  Report Type: Spontaneous
  Country: US (occurrence: US)
  Receive Date: 20250512
  Receipt Date: 20250512
  Transmission Date: 20250716
  Serious: Yes (Hospitalization, Other)
  Sender: TRAVERE THERAPEUTICS
  Company Number: US-TRAVERE-2025TVT00625

PATIENT
  Sex: Male

DRUGS (1)
  1. FILSPARI [Suspect]
     Active Substance: SPARSENTAN
     Indication: IgA nephropathy
     Route: 048

REACTIONS (7)
  - Dyspnoea [Unknown]
  - Coronary artery disease [Unknown]
  - Fluid retention [Unknown]
  - Asthenia [Unknown]
  - Pain in extremity [Unknown]
  - Peripheral swelling [Unknown]
  - Disturbance in attention [Unknown]
